FAERS Safety Report 14386444 (Version 2)
Quarter: 2019Q3

REPORT INFORMATION
  Report Type: Spontaneous
  Country: US (occurrence: US)
  Receive Date: 20180115
  Receipt Date: 20190918
  Transmission Date: 20191004
  Serious: Yes (Other)
  Sender: FDA-Public Use
  Company Number: US-SA-2017SA125128

PATIENT
  Age: 41 Year
  Sex: Female
  Weight: 53.97 kg

DRUGS (6)
  1. TAXOTERE [Suspect]
     Active Substance: DOCETAXEL
     Dosage: 118 MG, Q3W
     Route: 042
     Dates: start: 19980602, end: 19980602
  2. CYTOXAN [Concomitant]
     Active Substance: CYCLOPHOSPHAMIDE
     Indication: BREAST CANCER FEMALE
     Dosage: 118 MG, Q3W
     Dates: start: 19980506, end: 19980506
  3. TAXOL [Concomitant]
     Active Substance: PACLITAXEL
     Indication: BREAST CANCER FEMALE
     Dosage: 118 MG, Q3W
     Dates: start: 19980506, end: 19980506
  4. TAXOTERE [Suspect]
     Active Substance: DOCETAXEL
     Indication: BREAST CANCER FEMALE
     Dosage: 118 MG, Q3W
     Route: 042
     Dates: start: 19980506, end: 19980506
  5. CYTOXAN [Concomitant]
     Active Substance: CYCLOPHOSPHAMIDE
     Dosage: 118 MG, Q3W
     Dates: start: 19980602, end: 19980602
  6. TAXOL [Concomitant]
     Active Substance: PACLITAXEL
     Dosage: 118 MG, Q3W
     Dates: start: 19980602, end: 19980602

REACTIONS (2)
  - Psychological trauma [Unknown]
  - Alopecia [Recovering/Resolving]

NARRATIVE: CASE EVENT DATE: 19980130
